FAERS Safety Report 24130972 (Version 1)
Quarter: 2024Q3

REPORT INFORMATION
  Report Type: Spontaneous
  Country: CA (occurrence: CA)
  Receive Date: 20240724
  Receipt Date: 20240724
  Transmission Date: 20241016
  Serious: Yes (Hospitalization, Other)
  Sender: CELLTRION
  Company Number: CA-PFIZER INC-202400056895

PATIENT

DRUGS (27)
  1. INFLECTRA [Suspect]
     Active Substance: INFLIXIMAB-DYYB
     Indication: Psoriatic arthropathy
     Dosage: 500 MG, INDUCTION DOSES AT WEEK 0, 2 AND 6, THEN EVERY 8 WEEKS
     Route: 042
     Dates: start: 20200709, end: 20201013
  2. INFLECTRA [Suspect]
     Active Substance: INFLIXIMAB-DYYB
     Dosage: 6.5 MG/KG EVERY 6 WEEKS ROUNDED TO HIGHEST VIAL
     Route: 042
     Dates: start: 20201209, end: 20220720
  3. INFLECTRA [Suspect]
     Active Substance: INFLIXIMAB-DYYB
     Dosage: 6.5 MG, EVERY 6 WEEKS ROUNDED TO HIGHEST VIAL
     Route: 042
     Dates: start: 20221005, end: 20230515
  4. INFLECTRA [Suspect]
     Active Substance: INFLIXIMAB-DYYB
     Dosage: 10 MG/KG, EVERY 6 WEEKS, FIXED DOSE: 800MG
     Route: 042
     Dates: start: 20230629
  5. INFLECTRA [Suspect]
     Active Substance: INFLIXIMAB-DYYB
     Dosage: 10 MG/KG, EVERY 6 WEEKS
     Route: 042
     Dates: start: 20240123
  6. INFLECTRA [Suspect]
     Active Substance: INFLIXIMAB-DYYB
     Dosage: 800 MG, 9 WEEKS AND 6 DAYS (PRESCRIBED EVERY 6 WEEKS)
     Route: 042
     Dates: start: 20240401
  7. INFLECTRA [Suspect]
     Active Substance: INFLIXIMAB-DYYB
     Dosage: 800 MG, EVERY 6 WEEKS
     Route: 042
     Dates: start: 20240513
  8. INFLECTRA [Suspect]
     Active Substance: INFLIXIMAB-DYYB
     Dosage: 800 MG (10 MG/KG), EVERY 6 WEEKS
     Route: 042
     Dates: start: 20240626, end: 20240626
  9. AMLODIPINE [Concomitant]
     Active Substance: AMLODIPINE BESYLATE
     Dosage: 10 MG
     Route: 048
  10. AMLODIPINE [Concomitant]
     Active Substance: AMLODIPINE BESYLATE
     Dosage: 7500 UG
     Route: 048
  11. ASPIRIN [Concomitant]
     Active Substance: ASPIRIN
     Dosage: 80 MG, DOSAGE NOT AVAILABLE
     Route: 065
  12. ATORVASTATIN [Concomitant]
     Active Substance: ATORVASTATIN
     Dosage: 40 MG
     Route: 048
     Dates: start: 20240321
  13. CLONAZEPAM [Concomitant]
     Active Substance: CLONAZEPAM
     Dosage: 2 MG
     Route: 048
  14. CLOPIDOGREL [Concomitant]
     Active Substance: CLOPIDOGREL BISULFATE
     Dosage: 75 MG
     Route: 048
     Dates: start: 20240321
  15. ENOXAPARIN [Concomitant]
     Active Substance: ENOXAPARIN
     Dosage: 40 MG
     Route: 058
     Dates: start: 20210321
  16. GABAPENTIN [Concomitant]
     Active Substance: GABAPENTIN
     Dosage: 300 MG, 2X/DAY
     Route: 048
     Dates: start: 20240321
  17. HYDROCHLOROTHIAZIDE [Concomitant]
     Active Substance: HYDROCHLOROTHIAZIDE
     Dosage: 12.5 MG
     Route: 048
  18. LOSARTAN [Concomitant]
     Active Substance: LOSARTAN
     Dosage: 100 MG
     Route: 048
  19. METHOTREXATE [Concomitant]
     Active Substance: METHOTREXATE
     Dosage: 25 MG, WEEKLY
     Route: 065
     Dates: start: 201304
  20. MOXIFLOXACIN [Concomitant]
     Active Substance: MOXIFLOXACIN
     Indication: Eye infection
     Dosage: 1 DF, FOR 10 DAYS
     Route: 047
     Dates: start: 20220914
  21. MELATONIN [Concomitant]
     Active Substance: MELATONIN
     Dosage: 3 MG
     Route: 048
     Dates: start: 20240321
  22. METOPROLOL [Concomitant]
     Active Substance: METOPROLOL
     Dosage: 50 MG, 2X/DAY
     Route: 048
     Dates: start: 20240321
  23. NITROGLYCERIN [Concomitant]
     Active Substance: NITROGLYCERIN
     Dosage: 1 DF, AS NEEDED(DOSAGE NOT AVAILABLE - AS NEEDED )
     Route: 065
  24. NORTRIPTYLINE [Concomitant]
     Active Substance: NORTRIPTYLINE
     Dosage: 10 MG
     Route: 048
     Dates: start: 20240321
  25. OLOPATADINE [Concomitant]
     Active Substance: OLOPATADINE
     Indication: Eye infection
     Dosage: 1 DF, FOR 10 DAYS
     Route: 047
     Dates: start: 20220914
  26. SACUBITRIL\VALSARTAN [Concomitant]
     Active Substance: SACUBITRIL\VALSARTAN
     Dosage: 1 DF (51 MG + 49 MG)
     Route: 048
     Dates: start: 20240321
  27. SPIRONOLACTONE [Concomitant]
     Active Substance: SPIRONOLACTONE
     Dosage: 1 DF 12.5 MG
     Route: 048
     Dates: start: 20240321

REACTIONS (8)
  - Cerebrovascular accident [Not Recovered/Not Resolved]
  - Influenza [Recovered/Resolved]
  - Dizziness [Not Recovered/Not Resolved]
  - Decreased appetite [Not Recovered/Not Resolved]
  - Weight decreased [Not Recovered/Not Resolved]
  - Ejection fraction decreased [Unknown]
  - Off label use [Unknown]
  - Off label use [Unknown]

NARRATIVE: CASE EVENT DATE: 20201209
